FAERS Safety Report 5568371-0 (Version None)
Quarter: 2007Q4

REPORT INFORMATION
  Report Type: 
  Country: None (occurrence: None)
  Receive Date: 20071220
  Receipt Date: 20071210
  Transmission Date: 20080405
  Serious: Yes (Hospitalization)
  Sender: FDA-Public Use
  Company Number: AU-AMGEN-US256826

PATIENT
  Sex: Male
  Weight: 80 kg

DRUGS (4)
  1. ENBREL [Suspect]
     Indication: RHEUMATOID ARTHRITIS
     Dosage: 50 MG WEEKLY
     Route: 058
     Dates: start: 20060105, end: 20071001
  2. PREDNISOLONE [Concomitant]
     Dosage: 5 MG DAILY
     Route: 048
  3. NAPROSYN - SLOW RELEASE [Concomitant]
     Route: 048
  4. METHOTREXATE [Concomitant]
     Dosage: 20 MG WEEKLY
     Route: 048

REACTIONS (6)
  - CONDITION AGGRAVATED [None]
  - ENTEROBACTER SEPSIS [None]
  - HEADACHE [None]
  - MALAISE [None]
  - RENAL FAILURE [None]
  - RHEUMATOID ARTHRITIS [None]
